FAERS Safety Report 5193701-1 (Version None)
Quarter: 2006Q4

REPORT INFORMATION
  Report Type: 
  Country: None (occurrence: None)
  Receive Date: 20061228
  Receipt Date: 20061219
  Transmission Date: 20070319
  Serious: Yes (Other)
  Sender: FDA-Public Use
  Company Number: US-JNJFOC-20061205935

PATIENT
  Sex: Male
  Weight: 111.13 kg

DRUGS (15)
  1. IMODIUM A-D CREAMY MINT [Suspect]
  2. IMODIUM A-D CREAMY MINT [Suspect]
     Indication: DIARRHOEA
     Dosage: 4MG FOLLOWED BY 2MG TIMES TWO DOSES, 8 MG TOTAL IN 24 HOURS
  3. FLUOXETINE [Concomitant]
  4. GEMFIBROZIL [Concomitant]
  5. METOPROLOL SUCCINATE [Concomitant]
  6. MONTELUKAST [Concomitant]
  7. FISH OIL [Concomitant]
  8. VITAMINS COMPLETE 50 PLUS [Concomitant]
     Dosage: ONCE DAILY
  9. NAPROXEN [Concomitant]
  10. ASPIRIN [Concomitant]
  11. GLIPIZIDE [Concomitant]
  12. BENAZEPRIL HYDROCHLORIDE [Concomitant]
     Dosage: 40MG (HALF TABLET DAILY)
  13. METFORMIN HCL [Concomitant]
  14. SIMVASTATIN [Concomitant]
  15. NITROGLYCERIN [Concomitant]
     Route: 060

REACTIONS (4)
  - ASTHENIA [None]
  - DECREASED APPETITE [None]
  - ERUCTATION [None]
  - VISUAL DISTURBANCE [None]
